FAERS Safety Report 4618117-5 (Version None)
Quarter: 2005Q1

REPORT INFORMATION
  Report Type: 
  Country: None (occurrence: None)
  Receive Date: 20050323
  Receipt Date: 20050304
  Transmission Date: 20050727
  Serious: Yes (Hospitalization)
  Sender: FDA-Public Use
  Company Number: ATO-05-0036

PATIENT
  Age: 77 Year
  Sex: Male

DRUGS (9)
  1. TRISENOX [Suspect]
     Indication: MULTIPLE MYELOMA
     Dosage: 10 MG (10 MG, TWICE WEEKLY) INTRAVENOUS
     Route: 042
     Dates: start: 20050118, end: 20050208
  2. VELCADE [Suspect]
     Indication: MULTIPLE MYELOMA
     Dosage: 1.4 MG (1.4 MG,) IVI
     Dates: start: 20050118, end: 20050208
  3. VITAMIN C (ASCORBIC ACID) [Concomitant]
  4. ARANESP [Concomitant]
  5. ALDACTONE [Concomitant]
  6. PRINIVIL [Concomitant]
  7. TOPROL-XL [Concomitant]
  8. ASPIRIN [Concomitant]
  9. ZOMETA [Concomitant]

REACTIONS (3)
  - CHEST PAIN [None]
  - PLEURITIC PAIN [None]
  - SLEEP DISORDER [None]
